FAERS Safety Report 5390680-9 (Version None)
Quarter: 2007Q3

REPORT INFORMATION
  Report Type: 
  Country: None (occurrence: None)
  Receive Date: 20070718
  Receipt Date: 20070716
  Transmission Date: 20080115
  Serious: Yes (Other)
  Sender: FDA-Public Use
  Company Number: US-SHR-US-2007-022471

PATIENT
  Age: 40 Year
  Sex: Female
  Weight: 56 kg

DRUGS (3)
  1. YAZ [Suspect]
     Indication: ORAL CONTRACEPTION
     Dosage: 1 TAB(S), 1X/DAY
     Route: 048
     Dates: start: 20070521, end: 20070612
  2. ADDERALL 10 [Concomitant]
     Dosage: 10 MG, 1X/DAY
  3. TRAZODONE HCL [Concomitant]
     Dosage: 50 MG, 1X/DAY

REACTIONS (2)
  - BLOOD POTASSIUM INCREASED [None]
  - LOSS OF CONSCIOUSNESS [None]
